FAERS Safety Report 10511188 (Version 1)
Quarter: 2014Q4

REPORT INFORMATION
  Report Type: Spontaneous
  Country: US (occurrence: US)
  Receive Date: 20141010
  Receipt Date: 20141010
  Transmission Date: 20150528
  Serious: Yes (Hospitalization)
  Sender: FDA-Public Use
  Company Number: US-BAYER-2014-147830

PATIENT
  Age: 15 Year
  Sex: Male

DRUGS (2)
  1. HELIXATE FS [Suspect]
     Active Substance: ANTIHEMOPHILIC FACTOR, HUMAN RECOMBINANT
     Indication: MUSCLE HAEMORRHAGE
     Dosage: 5000 IU, TIW AND Q 12HOURS PRN
     Route: 042
     Dates: start: 20140928, end: 20140928
  2. HELIXATE FS [Suspect]
     Active Substance: ANTIHEMOPHILIC FACTOR, HUMAN RECOMBINANT
     Indication: FACTOR VIII DEFICIENCY
     Dosage: 5000 IU, TIW AND Q 12HOURS PRN
     Route: 042
     Dates: start: 20140927, end: 20140927

REACTIONS (3)
  - Haemarthrosis [Unknown]
  - Muscle haemorrhage [Unknown]
  - Sensory loss [Unknown]

NARRATIVE: CASE EVENT DATE: 20140927
